FAERS Safety Report 9998496 (Version 2)
Quarter: 2014Q2

REPORT INFORMATION
  Report Type: Spontaneous
  Country: US (occurrence: US)
  Receive Date: 20140312
  Receipt Date: 20140530
  Transmission Date: 20141212
  Serious: No
  Sender: FDA-Public Use
  Company Number: US-009507513-1403USA004914

PATIENT
  Sex: Male

DRUGS (2)
  1. JANUMET XR [Suspect]
     Dosage: 100/1000MG, FREQUENCY UNSPECIFIED
     Route: 048
  2. LANTUS [Suspect]
     Dosage: UNK

REACTIONS (1)
  - Night sweats [Unknown]
